FAERS Safety Report 8237083-7 (Version None)
Quarter: 2012Q1

REPORT INFORMATION
  Report Type: 
  Country: None (occurrence: None)
  Receive Date: 20120327
  Receipt Date: 20120322
  Transmission Date: 20120608
  Serious: Yes (Other)
  Sender: FDA-Public Use
  Company Number: VE-PFIZER INC-2012069834

PATIENT
  Age: 68 Year
  Sex: Female

DRUGS (3)
  1. ZOLOFT [Suspect]
     Indication: DEPRESSION
     Dosage: 50 MG, 1X/DAY
     Route: 048
     Dates: start: 20080101, end: 20100101
  2. LEXOTANIL [Concomitant]
     Indication: DEPRESSION
     Dosage: 3 MG, 1X/DAY
     Route: 048
     Dates: start: 20020101
  3. HYZAAR [Concomitant]
     Indication: HYPERTENSION
     Dosage: 100/25 MG, 1X/DAY
     Route: 048
     Dates: start: 19990101

REACTIONS (2)
  - GASTROINTESTINAL DISORDER [None]
  - INSOMNIA [None]
